FAERS Safety Report 21771318 (Version 1)
Quarter: 2022Q4

REPORT INFORMATION
  Report Type: Other
  Country: None (occurrence: GB)
  Receive Date: 20221223
  Receipt Date: 20221223
  Transmission Date: 20230113
  Serious: Yes (Death, Other)
  Sender: FDA-Public Use
  Company Number: GB-Nuvo Pharmaceuticals Inc-2136128

PATIENT
  Age: 40 Year
  Sex: Male

DRUGS (8)
  1. DIAZEPAM [Suspect]
     Active Substance: DIAZEPAM
     Indication: Product used for unknown indication
     Route: 065
  2. METHADONE [Suspect]
     Active Substance: METHADONE HYDROCHLORIDE
     Route: 065
  3. NYSTATIN [Suspect]
     Active Substance: NYSTATIN
     Route: 065
  4. XANAX [Suspect]
     Active Substance: ALPRAZOLAM
     Route: 065
  5. NORDAZEPAM [Suspect]
     Active Substance: NORDAZEPAM
     Route: 065
  6. METHADONE HYDROCHLORIDE [Suspect]
     Active Substance: METHADONE HYDROCHLORIDE
     Route: 065
  7. PREGABALIN [Suspect]
     Active Substance: PREGABALIN
     Route: 065
  8. FLUALPRAZOLAM [Suspect]
     Active Substance: FLUALPRAZOLAM
     Route: 065

REACTIONS (1)
  - Toxicity to various agents [Fatal]
